FAERS Safety Report 14759153 (Version 1)
Quarter: 2018Q2

REPORT INFORMATION
  Report Type: Spontaneous
  Country: IT (occurrence: IT)
  Receive Date: 20180413
  Receipt Date: 20180413
  Transmission Date: 20180711
  Serious: Yes (Other)
  Sender: FDA-Public Use
  Company Number: IT-MYLANLABS-2018M1023000

PATIENT
  Sex: Male

DRUGS (1)
  1. WARFARIN MYLAN [Suspect]
     Active Substance: WARFARIN
     Indication: CEREBRAL INFARCTION
     Dosage: UNK
     Route: 065

REACTIONS (2)
  - Seizure [Unknown]
  - Cerebral haemorrhage [Unknown]
